FAERS Safety Report 19903722 (Version 1)
Quarter: 2021Q4

REPORT INFORMATION
  Report Type: Spontaneous
  Country: FR (occurrence: FR)
  Receive Date: 20211001
  Receipt Date: 20211001
  Transmission Date: 20220303
  Serious: Yes (Hospitalization)
  Sender: FDA-Public Use
  Company Number: None

PATIENT
  Age: 9 Year
  Sex: Male
  Weight: 30.9 kg

DRUGS (1)
  1. METHOTREXATE (METHOTREXATE SODIUM) [Suspect]
     Active Substance: METHOTREXATE SODIUM
     Indication: Brain stem glioma
     Dosage: 12000 MG/M2
     Route: 042
     Dates: start: 20210628, end: 20210628

REACTIONS (3)
  - Drug level increased [Recovered/Resolved]
  - Accidental overdose [Recovered/Resolved]
  - Blood creatinine increased [Recovered/Resolved]

NARRATIVE: CASE EVENT DATE: 20210601
